FAERS Safety Report 15327695 (Version 1)
Quarter: 2018Q3

REPORT INFORMATION
  Report Type: Spontaneous
  Country: US (occurrence: US)
  Receive Date: 20180828
  Receipt Date: 20180828
  Transmission Date: 20181010
  Serious: No
  Sender: FDA-Public Use
  Company Number: US-SA-2018SA225824

PATIENT

DRUGS (1)
  1. ZANTAC [Suspect]
     Active Substance: RANITIDINE HYDROCHLORIDE
     Dosage: UNK, UNK
     Route: 065

REACTIONS (5)
  - Breast tenderness [Unknown]
  - Orgasm abnormal [Unknown]
  - Erectile dysfunction [Unknown]
  - Breast swelling [Unknown]
  - Libido decreased [Unknown]
